FAERS Safety Report 25050954 (Version 1)
Quarter: 2025Q1

REPORT INFORMATION
  Report Type: Spontaneous
  Country: JP (occurrence: JP)
  Receive Date: 20250307
  Receipt Date: 20250307
  Transmission Date: 20250408
  Serious: Yes (Other)
  Sender: PFIZER
  Company Number: JP-PFIZER INC-202500050560

PATIENT
  Sex: Female

DRUGS (1)
  1. INOTUZUMAB OZOGAMICIN [Suspect]
     Active Substance: INOTUZUMAB OZOGAMICIN
     Indication: Acute lymphocytic leukaemia

REACTIONS (5)
  - Venoocclusive liver disease [Recovering/Resolving]
  - Varices oesophageal [Unknown]
  - Oesophageal varices haemorrhage [Unknown]
  - Haematemesis [Unknown]
  - Shock haemorrhagic [Unknown]
